FAERS Safety Report 5168841-3 (Version None)
Quarter: 2006Q4

REPORT INFORMATION
  Report Type: 
  Country: None (occurrence: None)
  Receive Date: 20061211
  Receipt Date: 20061128
  Transmission Date: 20070319
  Serious: Yes (Hospitalization)
  Sender: FDA-Public Use
  Company Number: FR-BRISTOL-MYERS SQUIBB COMPANY-13603550

PATIENT
  Age: 63 Year
  Sex: Female

DRUGS (5)
  1. ENDOXAN [Suspect]
     Indication: BURKITT'S LYMPHOMA
     Route: 042
     Dates: start: 20061113, end: 20061115
  2. METHOTREXATE [Suspect]
     Indication: BURKITT'S LYMPHOMA
     Route: 042
     Dates: start: 20061112, end: 20061112
  3. DOXORUBICIN HCL [Suspect]
     Indication: BURKITT'S LYMPHOMA
     Route: 042
     Dates: start: 20061113, end: 20061113
  4. MABTHERA [Suspect]
     Indication: BURKITT'S LYMPHOMA
     Route: 042
     Dates: start: 20061111, end: 20061115
  5. ONCOVIN [Suspect]
     Indication: BURKITT'S LYMPHOMA
     Route: 042
     Dates: start: 20061112, end: 20061115

REACTIONS (3)
  - APLASIA [None]
  - BACTERIAL SEPSIS [None]
  - MUCOSAL INFLAMMATION [None]
